FAERS Safety Report 7327812-9 (Version None)
Quarter: 2011Q1

REPORT INFORMATION
  Report Type: 
  Country: None (occurrence: None)
  Receive Date: 20110303
  Receipt Date: 20110224
  Transmission Date: 20110831
  Serious: Yes (Other)
  Sender: FDA-Public Use
  Company Number: US-PFIZER INC-2011041033

PATIENT
  Sex: Female
  Weight: 58.05 kg

DRUGS (6)
  1. TRAMADOL [Concomitant]
     Dosage: 50 MG, UNK
  2. KLONOPIN [Concomitant]
     Dosage: 1 MG, UNK
  3. REGLAN [Concomitant]
     Dosage: 10 MG, UNK
  4. DILANTIN [Suspect]
     Indication: PARAESTHESIA
     Dosage: 30 MG, 1X/DAY
     Route: 048
     Dates: start: 20080101
  5. ACETAMINOPHEN [Concomitant]
     Indication: PAIN
     Dosage: UNK
  6. NORPRAMIN [Concomitant]
     Indication: DEPRESSION
     Dosage: 10 MG, UNK

REACTIONS (2)
  - DRUG INEFFECTIVE [None]
  - SUICIDAL IDEATION [None]
